FAERS Safety Report 9457855 (Version 2)
Quarter: 2013Q4

REPORT INFORMATION
  Report Type: Spontaneous
  Country: IT (occurrence: None)
  Receive Date: 20130812
  Receipt Date: 20131017
  Transmission Date: 20140711
  Serious: Yes (Hospitalization)
  Sender: FDA-Public Use
  Company Number: 2013IT009274

PATIENT
  Age: 71 Year
  Sex: Female
  Weight: 56 kg

DRUGS (5)
  1. ALOXI [Suspect]
     Indication: PROPHYLAXIS OF NAUSEA AND VOMITING
     Dosage: 0.25 MG, SINGLE, CYCLICAL, INTRAVENOUS
     Route: 042
     Dates: start: 20130117, end: 20130117
  2. EMEND [Suspect]
     Indication: PROPHYLAXIS OF NAUSEA AND VOMITING
     Dosage: 1 DF, CYCLICAL, ORAL
     Route: 048
     Dates: start: 20130117
  3. EPIRUBICIN HYDROCHLORIDE (EPIRUBICIN HYDROCHLORIDE) [Concomitant]
  4. ENDOXAN (CYCLOPHOSPHAMIDE) [Concomitant]
  5. NEORECORMON (EPOETIN BETA) [Concomitant]

REACTIONS (3)
  - Intestinal obstruction [None]
  - Anaemia [None]
  - Ileus paralytic [None]
